FAERS Safety Report 16136073 (Version 2)
Quarter: 2022Q1

REPORT INFORMATION
  Report Type: Report from Study
  Country: CA (occurrence: CA)
  Receive Date: 20190329
  Receipt Date: 20220322
  Transmission Date: 20220423
  Serious: Yes (Hospitalization, Other)
  Sender: FDA-Public Use
  Company Number: CA-PFIZER INC-2019130485

PATIENT
  Age: 5 Year
  Sex: Female

DRUGS (1)
  1. SOMATROPIN [Suspect]
     Active Substance: SOMATROPIN
     Indication: Growth hormone deficiency
     Dosage: 0.4 MG
     Route: 058

REACTIONS (5)
  - Craniopharyngioma [Recovered/Resolved]
  - Disease recurrence [Recovered/Resolved]
  - Hydrocephalus [Recovered/Resolved]
  - Swelling face [Recovered/Resolved]
  - Neoplasm recurrence [Recovered/Resolved]
